FAERS Safety Report 15803772 (Version 1)
Quarter: 2019Q1

REPORT INFORMATION
  Report Type: Spontaneous
  Country: US (occurrence: US)
  Receive Date: 20190109
  Receipt Date: 20190109
  Transmission Date: 20190417
  Serious: Yes (Death, Hospitalization, Other)
  Sender: FDA-Public Use
  Company Number: US-PFIZER INC-2016527371

PATIENT
  Age: 71 Year
  Sex: Female
  Weight: 65 kg

DRUGS (46)
  1. CARBIDOPA LEVODOPA [Concomitant]
     Active Substance: CARBIDOPA\LEVODOPA
     Dosage: 2 DF, 3X/DAY (CARBIDOPA: 25 MG; LEVODOPA: 100MG)
     Dates: start: 20160321
  2. SINEMET [Concomitant]
     Active Substance: CARBIDOPA\LEVODOPA
     Dosage: 200 MG, 3X/DAY
     Dates: start: 20160310
  3. ISOSORBIDE MONONITRATE. [Concomitant]
     Active Substance: ISOSORBIDE MONONITRATE
     Dosage: 60 MG, DAILY
     Dates: start: 20160208
  4. CILOSTAZOL. [Concomitant]
     Active Substance: CILOSTAZOL
     Dosage: 100 MG, 2X/DAY (EACH DAY ADRS TO TRENTAL)
     Dates: start: 20160208
  5. GLUCOSAMINE CHONDROITIN [Concomitant]
     Active Substance: CHONDROITIN SULFATE (BOVINE)\GLUCOSAMINE HYDROCHLORIDE
     Dosage: 2 DF, DAILY
     Dates: start: 20130218
  6. NITROSTAT [Concomitant]
     Active Substance: NITROGLYCERIN
     Indication: CHEST PAIN
     Dosage: 0.4 MG, UNK (EVERY FIVE MINUTES, MAXIMUM THREE DOSES)
     Route: 060
     Dates: start: 20101102
  7. PLAVIX [Concomitant]
     Active Substance: CLOPIDOGREL BISULFATE
     Dosage: 75 MG, DAILY
     Dates: start: 20161212
  8. DALIRESP [Concomitant]
     Active Substance: ROFLUMILAST
     Dosage: 500 UG, DAILY
     Dates: start: 20160831
  9. ALBUTEROL SULFATE. [Concomitant]
     Active Substance: ALBUTEROL SULFATE
     Dosage: UNK UNK, EVERY 4 HRS ((2.5 MG/3 ML) 0.083% 1 NEBULIZE SOLUTION EVERY 4 HOURS)
     Dates: start: 20160310
  10. PAXIL [Concomitant]
     Active Substance: PAROXETINE HYDROCHLORIDE
     Dosage: 20 MG, 1X/DAY (AT BEDTIME)
     Dates: start: 20161212
  11. SYMBICORT [Concomitant]
     Active Substance: BUDESONIDE\FORMOTEROL FUMARATE DIHYDRATE
     Dosage: UNK, 2X/DAY (160-4.5MCG/ACT 2 PUFFS AEROSAL)
     Dates: start: 20150611
  12. RANITIDINE. [Concomitant]
     Active Substance: RANITIDINE
     Dosage: 300 MG, 2X/DAY
     Dates: start: 20160303
  13. PAXIL [Concomitant]
     Active Substance: PAROXETINE HYDROCHLORIDE
     Dosage: 20 MG, 1X/DAY (AT BEDTIME)
     Dates: start: 20160208
  14. METOPROLOL SUCCINATE. [Concomitant]
     Active Substance: METOPROLOL SUCCINATE
     Dosage: 25 MG, DAILY
     Dates: start: 20161212
  15. CILOSTAZOL. [Concomitant]
     Active Substance: CILOSTAZOL
     Dosage: 100 MG, 2X/DAY (EACH DAY ADRS TO TRENTAL)
     Dates: start: 20161212
  16. VOLTAREN [Concomitant]
     Active Substance: DICLOFENAC SODIUM
     Dosage: 2 G, 4X/DAY
     Dates: start: 20141027
  17. LYRICA [Suspect]
     Active Substance: PREGABALIN
     Dosage: 150 MG, 3X/DAY (1 CAPSULE EVERY 8 HOURS)
     Route: 048
     Dates: start: 20161109
  18. LACTULOSE. [Concomitant]
     Active Substance: LACTULOSE
     Indication: CONSTIPATION
     Dosage: UNK UNK, AS NEEDED (10GM/15ML 15-30ML SOLUTION AT BEDTIME AS NEEDED)
     Dates: start: 20141222
  19. AUGMENTIN [Concomitant]
     Active Substance: AMOXICILLIN\CLAVULANATE POTASSIUM
     Dosage: 1000 MG, 2X/DAY [AMOXICILLIN 875 MG; CLAVULANIC ACID125 MG]
     Dates: start: 20170306
  20. LYRICA [Suspect]
     Active Substance: PREGABALIN
     Dosage: 150 MG, 3X/DAY [1 CAPSULE BY MOUTH 3 TIMES DAY]
     Route: 048
  21. LYRICA [Suspect]
     Active Substance: PREGABALIN
     Dosage: 200 MG, UNK
     Dates: end: 20181225
  22. ALBUTEROL SULFATE. [Concomitant]
     Active Substance: ALBUTEROL SULFATE
     Dosage: UNK, EVERY 4 HRS [(2.5 MG/3 ML) 0.083% 1 NEBULIZE SOLUTION EVERY 4 HOURS]
     Dates: start: 20161212
  23. ESTROPIPATE. [Concomitant]
     Active Substance: ESTROPIPATE
     Dosage: 0.75 MG, ALTERNATE DAY (1 TABLET EVERY OTHER DAY)
     Dates: start: 20160208
  24. LACTULOSE. [Concomitant]
     Active Substance: LACTULOSE
     Dosage: UNK UNK, AS NEEDED (10GM/15ML 15-30ML SOLUTION AT BEDTIME AS NEEDED)
     Dates: start: 20161212
  25. TESSALON [Concomitant]
     Active Substance: BENZONATATE
     Dosage: UNK UNK, AS NEEDED
     Dates: start: 20140918
  26. VITAMIN E [Concomitant]
     Active Substance: .ALPHA.-TOCOPHEROL
     Dosage: 1 DF, DAILY
     Dates: start: 20130218
  27. VITAMIN B12 [Concomitant]
     Active Substance: CYANOCOBALAMIN
     Dosage: 1000 UG, DAILY
     Dates: start: 20130218
  28. RANITIDINE HCL [Concomitant]
     Active Substance: RANITIDINE HYDROCHLORIDE
     Dosage: 300 MG, 2X/DAY
     Dates: start: 20161212
  29. ASPIRIN (E.C.) [Concomitant]
     Active Substance: ASPIRIN
     Dosage: 81 MG, DAILY
     Dates: start: 20160310
  30. SIMVASTATIN. [Concomitant]
     Active Substance: SIMVASTATIN
     Dosage: 20 MG, DAILY
     Dates: start: 20161212
  31. METOPROLOL SUCCINATE. [Concomitant]
     Active Substance: METOPROLOL SUCCINATE
     Dosage: 25 MG, DAILY
     Dates: start: 20160208
  32. ISOSORBIDE MONONITRATE. [Concomitant]
     Active Substance: ISOSORBIDE MONONITRATE
     Dosage: 60 MG, DAILY
     Dates: start: 20161212
  33. VITAMIN D [Concomitant]
     Active Substance: CHOLECALCIFEROL
     Dosage: UNK
     Dates: start: 20151007
  34. FLAVIX [Concomitant]
     Dosage: 75 MG, DAILY
     Dates: start: 20150105
  35. VENTOLIN HFA [Concomitant]
     Active Substance: ALBUTEROL SULFATE
     Dosage: UNK, AS NEEDED [2 PUFFS AEROSOL SOLN EVERY 6 HOURS PRN]
     Dates: start: 20170327
  36. SPIRIVA RESPIMAT [Concomitant]
     Active Substance: TIOTROPIUM BROMIDE
     Dosage: UNK, 1X/DAY [2 PUFFS EVERY AM]
     Dates: start: 20160831
  37. AMARYL [Concomitant]
     Active Substance: GLIMEPIRIDE
     Dosage: 1 MG, DAILY
     Dates: start: 20160321
  38. AMARYL [Concomitant]
     Active Substance: GLIMEPIRIDE
     Dosage: 1 MG, DAILY
     Dates: start: 20161212
  39. SIMVASTATIN. [Concomitant]
     Active Substance: SIMVASTATIN
     Dosage: 20 MG, DAILY
     Dates: start: 20160208
  40. PROAIR HFA [Concomitant]
     Active Substance: ALBUTEROL SULFATE
     Dosage: UNK, 4X/DAY (106 (50 BASE) MCG/ACT, 2 PUFFS)
     Dates: start: 20150912
  41. LYRICA [Suspect]
     Active Substance: PREGABALIN
     Indication: NEUROPATHY PERIPHERAL
     Dosage: 150 MG, 3X/DAY (ONE EVERY 8 HOURS)
     Dates: start: 20160421
  42. DULOXETINE. [Concomitant]
     Active Substance: DULOXETINE
     Dosage: 60 MG, 2X/DAY
     Dates: start: 20160310
  43. PROAIR HFA [Concomitant]
     Active Substance: ALBUTEROL SULFATE
     Dosage: UNK, 4X/DAY [108 (90 BASE) MCG/ACT 2 PUFFS AEROSOL SOLN EVERY 6 HOURS]
     Dates: start: 20161212
  44. ALEVE [Concomitant]
     Active Substance: NAPROXEN SODIUM
     Dosage: UNK UNK, AS NEEDED
     Dates: start: 20150727
  45. SYMBICORT [Concomitant]
     Active Substance: BUDESONIDE\FORMOTEROL FUMARATE DIHYDRATE
     Dosage: UNK UNK, 2X/DAY (160-4.5MCG/ACT 2 PUFFS AEROSAL)
     Dates: start: 20130611
  46. GARLIC. [Concomitant]
     Active Substance: GARLIC
     Dosage: 2000 MG, DAILY
     Dates: start: 20130218

REACTIONS (7)
  - Death [Fatal]
  - Parkinson^s disease [Unknown]
  - Fall [Unknown]
  - Chronic obstructive pulmonary disease [Unknown]
  - Diabetes mellitus [Unknown]
  - Respiratory disorder [Unknown]
  - Hip fracture [Unknown]

NARRATIVE: CASE EVENT DATE: 20181026
